FAERS Safety Report 7860078-X (Version None)
Quarter: 2011Q4

REPORT INFORMATION
  Report Type: 
  Country: None (occurrence: None)
  Receive Date: 20111025
  Receipt Date: 20111017
  Transmission Date: 20120403
  Serious: Yes (Other)
  Sender: FDA-Public Use
  Company Number: US-ACCORD-010917

PATIENT
  Age: 62 Year
  Sex: Female

DRUGS (3)
  1. ALEMTUZUMAB (ALEMTUZUMAB) [Concomitant]
  2. TACROLIMUS [Suspect]
     Indication: LIVER TRANSPLANT
  3. METHYLPREDNISOLONE [Concomitant]

REACTIONS (7)
  - APHASIA [None]
  - PARAPLEGIA [None]
  - TRISMUS [None]
  - APRAXIA [None]
  - NEUROTOXICITY [None]
  - OSMOTIC DEMYELINATION SYNDROME [None]
  - EXTENSOR PLANTAR RESPONSE [None]
